FAERS Safety Report 17714494 (Version 4)
Quarter: 2020Q3

REPORT INFORMATION
  Report Type: Spontaneous
  Country: NL (occurrence: NL)
  Receive Date: 20200427
  Receipt Date: 20200702
  Transmission Date: 20201102
  Serious: Yes (Hospitalization, Other)
  Sender: FDA-Public Use
  Company Number: NVSC2020NL007624

PATIENT
  Sex: Female
  Weight: 74 kg

DRUGS (13)
  1. ACETYLSALICYLIC ACID [Concomitant]
     Active Substance: ASPIRIN
     Indication: PRODUCT USED FOR UNKNOWN INDICATION
     Dosage: 80 MG, QD
     Route: 048
     Dates: start: 20191011, end: 20191031
  2. FLUDARABINE PHOSPHATE. [Suspect]
     Active Substance: FLUDARABINE PHOSPHATE
     Dosage: 60 MG, QD
     Route: 042
     Dates: start: 20191011, end: 20191012
  3. VALACICLOVIR [Concomitant]
     Active Substance: VALACYCLOVIR HYDROCHLORIDE
     Indication: PRODUCT USED FOR UNKNOWN INDICATION
     Dosage: 1000 MG, QD (500 MG, BID)
     Route: 065
     Dates: start: 20191015, end: 20191101
  4. VALACICLOVIR [Concomitant]
     Active Substance: VALACYCLOVIR HYDROCHLORIDE
     Dosage: 1000 MG, QD (500 MG, BID)
     Route: 048
     Dates: start: 20191128
  5. MESNA. [Suspect]
     Active Substance: MESNA
     Indication: PROPHYLAXIS
     Dosage: 1200 MG, QD (400 MG, TID (TOTAL 9 TIMES)
     Route: 042
     Dates: start: 20191010, end: 20191013
  6. COTRIMOXAZOL [Suspect]
     Active Substance: SULFAMETHOXAZOLE\TRIMETHOPRIM
     Indication: PROPHYLAXIS
     Dosage: 480 MG, QD
     Route: 048
     Dates: start: 20191015, end: 20191017
  7. TEMAZEPAM. [Concomitant]
     Active Substance: TEMAZEPAM
     Indication: SLEEP DISORDER
     Dosage: 10 MG, PRN
     Route: 065
  8. CYCLOPHOSPHAMIDE. [Suspect]
     Active Substance: CYCLOPHOSPHAMIDE
     Indication: BONE MARROW CONDITIONING REGIMEN
     Dosage: 940 MG, QD
     Route: 042
     Dates: start: 20191010, end: 20191010
  9. COTRIMOXAZOL [Suspect]
     Active Substance: SULFAMETHOXAZOLE\TRIMETHOPRIM
     Dosage: 480 MG, QD
     Route: 048
     Dates: start: 20191031
  10. ACCUMAX CO [Concomitant]
     Active Substance: HYDROCHLOROTHIAZIDE\QUINAPRIL HYDROCHLORIDE
     Indication: PRODUCT USED FOR UNKNOWN INDICATION
     Dosage: UNK
     Route: 065
  11. FLUDARABINE PHOSPHATE. [Suspect]
     Active Substance: FLUDARABINE PHOSPHATE
     Indication: BONE MARROW CONDITIONING REGIMEN
     Dosage: 57.5 MG, TOTAL (ONCE)
     Route: 042
     Dates: start: 20191010, end: 20191010
  12. TEMAZEPAM. [Concomitant]
     Active Substance: TEMAZEPAM
     Dosage: 10 MG, PRN
     Route: 065
     Dates: start: 20191017, end: 20191030
  13. SIMVASTATINE [Concomitant]
     Active Substance: SIMVASTATIN
     Indication: PRODUCT USED FOR UNKNOWN INDICATION
     Dosage: 40 MG, QD
     Route: 048
     Dates: start: 20180723

REACTIONS (34)
  - Neurotoxicity [Recovered/Resolved]
  - Hypophagia [Not Recovered/Not Resolved]
  - Headache [Recovered/Resolved]
  - Cytokine release syndrome [Recovered/Resolved]
  - Hypotension [Recovered/Resolved]
  - Chills [Recovered/Resolved]
  - Neuropathy peripheral [Not Recovered/Not Resolved]
  - Constipation [Recovered/Resolved]
  - Upper respiratory tract infection [Recovered/Resolved]
  - Abdominal pain [Recovered/Resolved]
  - Neutropenia [Recovered/Resolved]
  - Back pain [Recovered/Resolved]
  - Decreased appetite [Not Recovered/Not Resolved]
  - Diarrhoea [Recovered/Resolved]
  - Weight decreased [Recovered/Resolved]
  - Fatigue [Recovered/Resolved]
  - Neutrophil count decreased [Not Recovered/Not Resolved]
  - Bradyphrenia [Recovered/Resolved]
  - Pyrexia [Recovered/Resolved]
  - Pyrexia [Recovered/Resolved]
  - Fatigue [Recovered/Resolved]
  - Cough [Recovered/Resolved]
  - Parainfluenzae virus infection [Recovered/Resolved]
  - Oedema peripheral [Recovered/Resolved]
  - Rhinorrhoea [Recovered/Resolved]
  - Haemolysis [Recovered/Resolved]
  - Hypoxia [Recovered/Resolved]
  - Gastrooesophageal reflux disease [Recovered/Resolved]
  - Tremor [Recovered/Resolved]
  - Bradycardia [Recovered/Resolved]
  - Chest pain [Recovered/Resolved]
  - Non-cardiac chest pain [Recovered/Resolved]
  - Unevaluable event [Recovered/Resolved]
  - Nausea [Recovered/Resolved]

NARRATIVE: CASE EVENT DATE: 201910
